FAERS Safety Report 23033793 (Version 1)
Quarter: 2023Q4

REPORT INFORMATION
  Report Type: Spontaneous
  Country: US (occurrence: US)
  Receive Date: 20231005
  Receipt Date: 20231005
  Transmission Date: 20240110
  Serious: No
  Sender: FDA-Public Use
  Company Number: US-TRIS PHARMA, INC.-23US011093

PATIENT

DRUGS (1)
  1. DYANAVEL XR [Suspect]
     Active Substance: AMPHETAMINE
     Indication: Product used for unknown indication
     Dosage: 20 MILLIGRAM

REACTIONS (3)
  - Intercepted product prescribing error [Unknown]
  - Off label use [Unknown]
  - Therapeutic response shortened [Unknown]
